FAERS Safety Report 5890493-5 (Version None)
Quarter: 2008Q3

REPORT INFORMATION
  Report Type: 
  Country: None (occurrence: None)
  Receive Date: 20080922
  Receipt Date: 20080911
  Transmission Date: 20090109
  Serious: Yes (Hospitalization)
  Sender: FDA-Public Use
  Company Number: FR-ASTRAZENECA-2008CG01096

PATIENT
  Age: 26102 Day
  Sex: Male
  Weight: 77.5 kg

DRUGS (7)
  1. CASODEX [Suspect]
     Indication: PROSTATE CANCER METASTATIC
     Route: 048
     Dates: start: 20080616, end: 20080712
  2. ZACTIMA [Suspect]
     Indication: PROSTATE CANCER METASTATIC
     Route: 048
     Dates: start: 20080616, end: 20080712
  3. LAROXYL [Suspect]
     Indication: ANALGESIC THERAPY
     Route: 048
     Dates: start: 20080610, end: 20080712
  4. OMEXEL [Suspect]
     Indication: BENIGN PROSTATIC HYPERPLASIA
     Route: 048
     Dates: start: 20080624, end: 20080712
  5. INDAPAMIDE [Concomitant]
     Indication: HYPERTENSION
     Route: 048
  6. XYZAL [Concomitant]
     Indication: ANTIALLERGIC THERAPY
     Route: 048
     Dates: start: 20080707, end: 20080713
  7. CELESTAMINE TAB [Concomitant]
     Indication: ANTIALLERGIC THERAPY
     Route: 048
     Dates: start: 20080704, end: 20080712

REACTIONS (1)
  - PHOTOSENSITIVITY REACTION [None]
